FAERS Safety Report 11517150 (Version 2)
Quarter: 2016Q1

REPORT INFORMATION
  Report Type: Spontaneous
  Country: US (occurrence: US)
  Receive Date: 20150917
  Receipt Date: 20160129
  Transmission Date: 20160525
  Serious: Yes (Other)
  Sender: FDA-Public Use
  Company Number: US-GLAXOSMITHKLINE-US2015GSK132919

PATIENT
  Age: 67 Year
  Sex: Female
  Weight: 61.22 kg

DRUGS (1)
  1. VENTOLIN [Suspect]
     Active Substance: ALBUTEROL SULFATE
     Indication: ASTHMA
     Dosage: 2 PUFF(S), Q 4-6 HRS PRN
     Route: 055
     Dates: start: 20150709, end: 20150909

REACTIONS (6)
  - Wheezing [Unknown]
  - Radiotherapy [Unknown]
  - Asthma [Unknown]
  - Surgery [Unknown]
  - Hypersensitivity [Unknown]
  - Precancerous cells present [Unknown]

NARRATIVE: CASE EVENT DATE: 201506
